FAERS Safety Report 18032507 (Version 3)
Quarter: 2024Q4

REPORT INFORMATION
  Report Type: Report from Study
  Country: CA (occurrence: CA)
  Receive Date: 20200716
  Receipt Date: 20241211
  Transmission Date: 20250115
  Serious: No
  Sender: ROCHE
  Company Number: CA-ROCHE-2203406

PATIENT
  Age: 37 Year
  Sex: Male

DRUGS (6)
  1. OCREVUS [Suspect]
     Active Substance: OCRELIZUMAB
     Indication: Relapsing-remitting multiple sclerosis
     Dosage: LIQUID 300 MG AT DAY 0 AND 14, THEN 600 MG EVERY 6 MONTH?RECEIVED SUBSEQUENT DOSE ON 10/JUL/2020
     Route: 042
     Dates: start: 20181011
  2. OCREVUS [Suspect]
     Active Substance: OCRELIZUMAB
     Dosage: 600 MG EVERY 6 MONTH
     Route: 042
  3. PROZAC [Suspect]
     Active Substance: FLUOXETINE HYDROCHLORIDE
     Indication: Depression
     Route: 065
  4. PAXIL [Concomitant]
     Active Substance: PAROXETINE HYDROCHLORIDE
     Indication: Product used for unknown indication
  5. VYVANSE [Concomitant]
     Active Substance: LISDEXAMFETAMINE DIMESYLATE
  6. WELLBUTRIN [Concomitant]
     Active Substance: BUPROPION HYDROCHLORIDE

REACTIONS (9)
  - Fatigue [Recovered/Resolved]
  - Aggression [Recovering/Resolving]
  - Depressive symptom [Recovering/Resolving]
  - Thinking abnormal [Recovering/Resolving]
  - Influenza [Recovered/Resolved]
  - Acne pustular [Recovered/Resolved]
  - Headache [Not Recovered/Not Resolved]
  - Somnolence [Recovered/Resolved]
  - Balance disorder [Unknown]

NARRATIVE: CASE EVENT DATE: 20190101
